FAERS Safety Report 24589754 (Version 1)
Quarter: 2024Q4

REPORT INFORMATION
  Report Type: Spontaneous
  Country: US (occurrence: US)
  Receive Date: 20241107
  Receipt Date: 20241107
  Transmission Date: 20250114
  Serious: Yes (Other)
  Sender: JOHNSON AND JOHNSON
  Company Number: US-JNJFOC-20241083924

PATIENT
  Sex: Male

DRUGS (1)
  1. TOPIRAMATE [Suspect]
     Active Substance: TOPIRAMATE
     Indication: Migraine
     Route: 048

REACTIONS (6)
  - Loss of consciousness [Unknown]
  - Migraine [Unknown]
  - Therapeutic product effect decreased [Unknown]
  - Product formulation issue [Unknown]
  - Product size issue [Unknown]
  - Product taste abnormal [Unknown]
